FAERS Safety Report 6210516-3 (Version None)
Quarter: 2009Q2

REPORT INFORMATION
  Report Type: 
  Country: None (occurrence: None)
  Receive Date: 20090601
  Receipt Date: 20090522
  Transmission Date: 20091009
  Serious: Yes (Death)
  Sender: FDA-Public Use
  Company Number: A0787230A

PATIENT
  Sex: Female

DRUGS (3)
  1. SERETIDE [Suspect]
     Indication: ASTHMA
     Dosage: 2PUFF TWICE PER DAY
     Dates: start: 20060101, end: 20090223
  2. SIMVASTATIN [Concomitant]
     Dosage: 1TAB PER DAY
     Dates: start: 20070101, end: 20090223
  3. LOSARTAN POTASSIUM [Concomitant]
     Dosage: 1TAB TWICE PER DAY
     Dates: start: 20070101, end: 20090223

REACTIONS (1)
  - HEPATIC NEOPLASM MALIGNANT [None]
